FAERS Safety Report 8987916 (Version 1)
Quarter: 2012Q4

REPORT INFORMATION
  Report Type: 
  Country: US (occurrence: US)
  Receive Date: 20121227
  Receipt Date: 20121227
  Transmission Date: 20130627
  Serious: No
  Sender: FDA-Public Use
  Company Number: US-ASTRAZENECA-2012SE93022

PATIENT
  Age: 68 Year
  Sex: Female
  Weight: 74.8 kg

DRUGS (14)
  1. NEXIUM [Suspect]
     Indication: GASTROOESOPHAGEAL REFLUX DISEASE
     Route: 048
  2. TOPROL XL [Suspect]
     Indication: HYPERTENSION
     Route: 048
  3. TOPROL XL [Suspect]
     Indication: CARDIAC DISORDER
     Route: 048
  4. NORVASC [Concomitant]
     Indication: BLOOD PRESSURE DIASTOLIC INCREASED
     Route: 048
  5. SIMVASTATIN [Concomitant]
     Indication: VENTRICULAR EXTRASYSTOLES
  6. VESICARE [Concomitant]
     Indication: INCONTINENCE
     Dates: start: 2011
  7. PHENAZOPYRIDINE [Concomitant]
     Indication: CYSTITIS INTERSTITIAL
     Route: 048
  8. PRED FORTE [Concomitant]
     Indication: IRITIS
     Dosage: AS REQUIRED
     Route: 050
     Dates: start: 1977
  9. VALIUM [Concomitant]
     Indication: TOOTH DISORDER
  10. RECLAST [Concomitant]
     Indication: OSTEOPOROSIS
     Route: 042
     Dates: start: 201112
  11. EYE DROPS VARIOUS [Concomitant]
     Indication: IRITIS
     Route: 050
  12. TUMS [Concomitant]
     Indication: ANTACID THERAPY
     Dosage: AS REQUIRED
     Route: 048
  13. PEPCID [Concomitant]
     Indication: ANTACID THERAPY
     Dosage: AS REQUIRED
     Route: 048
  14. ADVIL [Concomitant]
     Dosage: AS REQUIRED
     Route: 048

REACTIONS (7)
  - Osteoporosis [Unknown]
  - Hypertension [Unknown]
  - Cardiac disorder [Unknown]
  - Urinary incontinence [Unknown]
  - Ventricular extrasystoles [Unknown]
  - Dysphagia [Unknown]
  - Drug ineffective [Unknown]
